FAERS Safety Report 26043978 (Version 1)
Quarter: 2025Q4

REPORT INFORMATION
  Report Type: Spontaneous
  Country: JP (occurrence: JP)
  Receive Date: 20251114
  Receipt Date: 20251114
  Transmission Date: 20260117
  Serious: Yes (Death, Hospitalization, Other)
  Sender: TEVA
  Company Number: JP-TEVA-VS-3391127

PATIENT
  Age: 51 Year
  Sex: Female

DRUGS (2)
  1. EPIRUBICIN [Suspect]
     Active Substance: EPIRUBICIN
     Indication: Inflammatory carcinoma of the breast
     Route: 065
  2. BISOPROLOL [Suspect]
     Active Substance: BISOPROLOL
     Indication: Ventricular tachycardia
     Route: 065

REACTIONS (7)
  - Cardiac dysfunction [Fatal]
  - Bradycardia [Unknown]
  - Atrioventricular block [Unknown]
  - Cardiotoxicity [Unknown]
  - Sinus node dysfunction [Unknown]
  - Cardiac failure [Unknown]
  - Ventricular arrhythmia [Unknown]
